FAERS Safety Report 20797880 (Version 1)
Quarter: 2022Q2

REPORT INFORMATION
  Report Type: Spontaneous
  Country: US (occurrence: None)
  Receive Date: 20220506
  Receipt Date: 20220506
  Transmission Date: 20220721
  Serious: Yes (Hospitalization)
  Sender: FDA-Public Use
  Company Number: None

PATIENT
  Age: 69 Year
  Sex: Male

DRUGS (2)
  1. XGEVA [Suspect]
     Active Substance: DENOSUMAB
     Dosage: OTHER FREQUENCY : Q28D;?
     Route: 058
     Dates: start: 20220422
  2. NEUPOGEN [Suspect]
     Active Substance: FILGRASTIM
     Dosage: OTHER FREQUENCY : 21D;?
     Route: 058

REACTIONS (1)
  - Hospitalisation [None]
